FAERS Safety Report 5102949-3 (Version None)
Quarter: 2006Q3

REPORT INFORMATION
  Report Type: 
  Country: None (occurrence: None)
  Receive Date: 20060907
  Receipt Date: 20060821
  Transmission Date: 20061208
  Serious: Yes (Hospitalization)
  Sender: FDA-Public Use
  Company Number: FR200605004335

PATIENT
  Age: 81 Year
  Sex: Female
  Weight: 45 kg

DRUGS (8)
  1. FORTEO [Suspect]
     Indication: OSTEOPOROSIS
     Dosage: 20 UG, DAILY (1/D), SUBCUTANEOUS
     Route: 058
     Dates: start: 20051201, end: 20060301
  2. FORTEO [Concomitant]
  3. FIXICAL VITAMINE D3 (CALCIUM CARBONATE, COLECALCIFEROL) [Concomitant]
  4. COAPROVEL /GFR/ (HYDROCHLOROTHIAZIDE, IRBESARTAN) [Concomitant]
  5. CACIT D3 (CALCIUM CARBONATE, COLECALCIFEROL) [Concomitant]
  6. TANAKAN (GINKGO BILOBA EXTRACT) TABLET [Concomitant]
  7. SPASFON (PHLOROGLUCINOL, TRIMETHYLPHLOROGLUCINOL) TABLET [Concomitant]
  8. PROPOFAN /01607901/ (CAFFEINE, DEXTROPROPOXYPHENE, PARACETAMOL) TABLET [Concomitant]

REACTIONS (3)
  - CONFUSIONAL STATE [None]
  - HYPERCALCAEMIA [None]
  - HYPERPARATHYROIDISM [None]
